FAERS Safety Report 7940630-3 (Version None)
Quarter: 2011Q4

REPORT INFORMATION
  Report Type: 
  Country: None (occurrence: None)
  Receive Date: 20111108
  Receipt Date: 20100916
  Transmission Date: 20120403
  Serious: Yes (Other)
  Sender: FDA-Public Use
  Company Number: PHHY2010US58100

PATIENT
  Age: 69 Year
  Sex: Female

DRUGS (11)
  1. VITAMIN D [Concomitant]
  2. AVALIDE [Concomitant]
  3. CADUET [Concomitant]
  4. ZOMETA [Suspect]
     Indication: METASTASES TO BONE
     Dosage: 4 NG EVERY 4 WEEKS, INTRAVENOUS
     Route: 042
     Dates: start: 20100801
  5. ZOMETA [Suspect]
     Indication: METASTASES TO BONE
     Dosage: 4 NG EVERY 4 WEEKS, INTRAVENOUS
     Route: 042
     Dates: start: 20100801
  6. AROMASIN [Concomitant]
  7. LIPITOR [Concomitant]
  8. CALCIUM CARBONATE [Concomitant]
  9. CERIETOL [Concomitant]
  10. NORVASC [Concomitant]
  11. ASCORBIC ACID [Concomitant]

REACTIONS (2)
  - LIP OEDEMA [None]
  - ANGIOEDEMA [None]
